FAERS Safety Report 25145502 (Version 1)
Quarter: 2025Q2

REPORT INFORMATION
  Report Type: Spontaneous
  Country: SA (occurrence: SA)
  Receive Date: 20250401
  Receipt Date: 20250401
  Transmission Date: 20250716
  Serious: Yes (Life-Threatening, Other)
  Sender: PFIZER
  Company Number: SA-PFIZER INC-PV202500037943

PATIENT
  Age: 2 Month
  Sex: Female

DRUGS (10)
  1. METHYLPREDNISOLONE [Suspect]
     Active Substance: METHYLPREDNISOLONE
     Indication: Kaposiform haemangioendothelioma
     Dosage: 2 MG/KG, DAILY
  2. METHYLPREDNISOLONE [Suspect]
     Active Substance: METHYLPREDNISOLONE
     Indication: Haemangioma-thrombocytopenia syndrome
  3. MEROPENEM [Suspect]
     Active Substance: MEROPENEM
     Indication: Kaposiform haemangioendothelioma
  4. MEROPENEM [Suspect]
     Active Substance: MEROPENEM
     Indication: Haemangioma-thrombocytopenia syndrome
  5. VANCOMYCIN HYDROCHLORIDE [Suspect]
     Active Substance: VANCOMYCIN HYDROCHLORIDE
     Indication: Haemangioma-thrombocytopenia syndrome
  6. VANCOMYCIN HYDROCHLORIDE [Suspect]
     Active Substance: VANCOMYCIN HYDROCHLORIDE
     Indication: Kaposiform haemangioendothelioma
  7. FLAGYL [Suspect]
     Active Substance: METRONIDAZOLE\METRONIDAZOLE HYDROCHLORIDE
     Indication: Kaposiform haemangioendothelioma
  8. FLAGYL [Suspect]
     Active Substance: METRONIDAZOLE\METRONIDAZOLE HYDROCHLORIDE
     Indication: Haemangioma-thrombocytopenia syndrome
  9. PROPRANOLOL [Suspect]
     Active Substance: PROPRANOLOL HYDROCHLORIDE
     Indication: Kaposiform haemangioendothelioma
     Dosage: 0.6 MG/KG, DAILY
  10. PROPRANOLOL [Suspect]
     Active Substance: PROPRANOLOL HYDROCHLORIDE
     Indication: Haemangioma-thrombocytopenia syndrome

REACTIONS (2)
  - Drug ineffective for unapproved indication [Unknown]
  - Off label use [Unknown]
